FAERS Safety Report 10170756 (Version 1)
Quarter: 2014Q2

REPORT INFORMATION
  Report Type: Spontaneous
  Country: NO (occurrence: NO)
  Receive Date: 20140514
  Receipt Date: 20140514
  Transmission Date: 20141212
  Serious: Yes (Hospitalization)
  Sender: FDA-Public Use
  Company Number: NO-JNJFOC-20140501659

PATIENT
  Sex: Male

DRUGS (19)
  1. DOXORUBICIN HYDROCHLORIDE [Suspect]
     Indication: DIFFUSE LARGE B-CELL LYMPHOMA
     Route: 042
  2. MYCOPHENOLATE MOFETIL [Suspect]
     Indication: PRODUCT USED FOR UNKNOWN INDICATION
     Route: 065
  3. RITUXIMAB [Suspect]
     Indication: DIFFUSE LARGE B-CELL LYMPHOMA
     Route: 065
  4. CYCLOPHOSPHAMIDE [Suspect]
     Indication: DIFFUSE LARGE B-CELL LYMPHOMA
     Route: 065
  5. CYCLOPHOSPHAMIDE [Suspect]
     Indication: DIFFUSE LARGE B-CELL LYMPHOMA
     Route: 065
  6. PREDNISOLONE [Suspect]
     Indication: DIFFUSE LARGE B-CELL LYMPHOMA
     Route: 065
  7. VINCRISTINE SULFATE [Suspect]
     Indication: DIFFUSE LARGE B-CELL LYMPHOMA
     Route: 065
  8. METHYLPREDNISOLONE [Suspect]
     Indication: TRANSPLANT REJECTION
     Route: 042
  9. ANTITHYMOCYTE IMMUNOGLOBULIN [Suspect]
     Indication: TRANSPLANT REJECTION
     Route: 065
  10. TACROLIMUS [Suspect]
     Indication: PRODUCT USED FOR UNKNOWN INDICATION
     Route: 065
  11. INSULIN [Concomitant]
     Indication: TYPE 1 DIABETES MELLITUS
     Route: 065
  12. EMTRICITABINE [Concomitant]
     Indication: HEPATITIS B
     Route: 065
  13. TRIMETHOPRIM SULFAMETHOXAZOLE [Concomitant]
     Indication: PROPHYLAXIS
     Route: 065
  14. UNKNOWN ANTIHYPERTENSIVE DRUG [Concomitant]
     Indication: HYPERTENSION
     Route: 065
  15. ASPIRIN [Concomitant]
     Route: 065
  16. PHENOXYMETHYLPENICILLIN [Concomitant]
     Indication: BODY TEMPERATURE FLUCTUATION
     Route: 048
  17. PHENOXYMETHYLPENICILLIN [Concomitant]
     Indication: DYSPNOEA
     Route: 048
  18. PHENOXYMETHYLPENICILLIN [Concomitant]
     Indication: PRODUCTIVE COUGH
     Route: 048
  19. PHENOXYMETHYLPENICILLIN [Concomitant]
     Indication: MALAISE
     Route: 048

REACTIONS (2)
  - Strongyloidiasis [Recovered/Resolved]
  - Infection reactivation [Recovered/Resolved]
